FAERS Safety Report 9279030 (Version 2)
Quarter: 2013Q2

REPORT INFORMATION
  Report Type: Spontaneous
  Country: US (occurrence: US)
  Receive Date: 20130508
  Receipt Date: 20130517
  Transmission Date: 20140414
  Serious: Yes (Other)
  Sender: FDA-Public Use
  Company Number: US-FRI-1000044954

PATIENT
  Age: 63 Year
  Sex: Male
  Weight: 65.77 kg

DRUGS (6)
  1. DALIRESP [Suspect]
     Indication: CHRONIC OBSTRUCTIVE PULMONARY DISEASE
     Dosage: 500 MCG
     Route: 048
     Dates: start: 20121219, end: 201302
  2. PREDNISONE [Suspect]
  3. LEXAPRO [Suspect]
  4. XANAX [Suspect]
  5. MORPHINE [Suspect]
  6. OXYCODONE [Suspect]

REACTIONS (3)
  - Overdose [Recovered/Resolved]
  - Impulsive behaviour [Recovered/Resolved]
  - Coma [Recovered/Resolved]
